FAERS Safety Report 9499156 (Version 1)
Quarter: 2013Q3

REPORT INFORMATION
  Report Type: Spontaneous
  Country: US (occurrence: US)
  Receive Date: 20130905
  Receipt Date: 20130905
  Transmission Date: 20140515
  Serious: No
  Sender: FDA-Public Use
  Company Number: US-B.I. PHARMACEUTICALS,INC./RIDGEFIELD-2013-BI-26428BP

PATIENT
  Age: 58 Year
  Sex: Female
  Weight: 44 kg

DRUGS (1)
  1. CATAPRES TTS [Suspect]
     Indication: LABILE HYPERTENSION
     Dosage: STRENGTH: 5.0 MG (0.2 MG / DAY);
     Route: 061
     Dates: start: 20130821

REACTIONS (6)
  - Skin disorder [Recovered/Resolved]
  - Skin disorder [Recovered/Resolved]
  - Pain of skin [Recovered/Resolved]
  - Dermatitis contact [Not Recovered/Not Resolved]
  - Fluid retention [Not Recovered/Not Resolved]
  - Weight increased [Not Recovered/Not Resolved]
